FAERS Safety Report 19731839 (Version 1)
Quarter: 2021Q3

REPORT INFORMATION
  Report Type: Spontaneous
  Country: SE (occurrence: SE)
  Receive Date: 20210820
  Receipt Date: 20210820
  Transmission Date: 20211014
  Serious: Yes (Other)
  Sender: FDA-Public Use
  Company Number: SE-TEVA-2021-SE-1941691

PATIENT
  Age: 58 Year
  Sex: Male

DRUGS (1)
  1. ATORVASTATIN ACTAVIS [Suspect]
     Active Substance: ATORVASTATIN
     Route: 048
     Dates: end: 20210706

REACTIONS (3)
  - Muscle atrophy [Unknown]
  - Renal failure [Unknown]
  - Hypotension [Unknown]

NARRATIVE: CASE EVENT DATE: 202103
